FAERS Safety Report 17334518 (Version 3)
Quarter: 2020Q1

REPORT INFORMATION
  Report Type: Spontaneous
  Country: US (occurrence: US)
  Receive Date: 20200128
  Receipt Date: 20200317
  Transmission Date: 20200409
  Serious: No
  Sender: FDA-Public Use
  Company Number: US-AMGEN-USASP2020012382

PATIENT
  Sex: Female

DRUGS (9)
  1. AZELASTINE HCL [Concomitant]
     Active Substance: AZELASTINE HYDROCHLORIDE
     Dosage: UNK
  2. METFORMIN HCL [Concomitant]
     Active Substance: METFORMIN HYDROCHLORIDE
     Dosage: 500 MILLIGRAM
  3. MONTELUKAST [Concomitant]
     Active Substance: MONTELUKAST SODIUM
     Dosage: 10 MILLIGRAM
  4. SULFASALAZINE DELAYED-RELEASE [Concomitant]
     Active Substance: SULFASALAZINE
     Dosage: 500 MILLIGRAM
  5. LEFLUNOMIDE. [Concomitant]
     Active Substance: LEFLUNOMIDE
     Dosage: 20 MILLIGRAM
  6. METHYLPREDNIS [Concomitant]
     Dosage: UNK
  7. LOSARTAN POTASSIUM. [Concomitant]
     Active Substance: LOSARTAN POTASSIUM
     Dosage: 100 MILLIGRAM
  8. METHYLPREDNISOLONE. [Concomitant]
     Active Substance: METHYLPREDNISOLONE
     Dosage: 4 MILLIGRAM
  9. ENBREL [Suspect]
     Active Substance: ETANERCEPT
     Indication: ARTHRALGIA
     Dosage: 50 MILLIGRAM, QWK
     Route: 058
     Dates: start: 202001

REACTIONS (5)
  - Pruritus [Unknown]
  - Injection site erythema [Not Recovered/Not Resolved]
  - Off label use [Unknown]
  - Erythema [Unknown]
  - Urticaria [Unknown]

NARRATIVE: CASE EVENT DATE: 2020
